FAERS Safety Report 7580711-X (Version None)
Quarter: 2011Q2

REPORT INFORMATION
  Report Type: 
  Country: None (occurrence: None)
  Receive Date: 20110629
  Receipt Date: 20110617
  Transmission Date: 20111010
  Serious: Yes (Hospitalization)
  Sender: FDA-Public Use
  Company Number: CZ-JNJFOC-20110609331

PATIENT
  Sex: Male

DRUGS (2)
  1. REMICADE [Suspect]
     Indication: PSORIASIS
     Route: 042
     Dates: start: 20110501
  2. REMICADE [Suspect]
     Dosage: TREATED WITH INFLIXIMAB FOR APPROXIMATELY 2 YEARS
     Route: 042

REACTIONS (2)
  - HEARING IMPAIRED [None]
  - BORRELIA TEST POSITIVE [None]
